FAERS Safety Report 18134056 (Version 1)
Quarter: 2020Q3

REPORT INFORMATION
  Report Type: Spontaneous
  Country: US (occurrence: US)
  Receive Date: 20200808
  Receipt Date: 20200808
  Transmission Date: 20201103
  Serious: No
  Sender: FDA-Public Use
  Company Number: None

PATIENT
  Age: 70 Year
  Sex: Female

DRUGS (1)
  1. HUMIRA [Suspect]
     Active Substance: ADALIMUMAB
     Indication: COLITIS ULCERATIVE
     Dosage: ?          OTHER DOSE:40MG CF;?
     Route: 058
     Dates: start: 20200506

REACTIONS (3)
  - Wrong product administered [None]
  - Product dispensing error [None]
  - Dizziness [None]

NARRATIVE: CASE EVENT DATE: 20200806
